FAERS Safety Report 8369757-1 (Version None)
Quarter: 2012Q2

REPORT INFORMATION
  Report Type: 
  Country: None (occurrence: None)
  Receive Date: 20120518
  Receipt Date: 20120515
  Transmission Date: 20120825
  Serious: Yes (Other)
  Sender: FDA-Public Use
  Company Number: PHEH2012US010216

PATIENT
  Sex: Female

DRUGS (5)
  1. GLEEVEC [Suspect]
     Dosage: 1 DF, EVERY DAY
     Route: 048
     Dates: start: 20060101
  2. METOPROLOL [Concomitant]
  3. SOMA [Concomitant]
  4. MULTI-VITAMINS [Concomitant]
  5. OXYCODONE HCL AND ACETAMINOPHEN [Concomitant]

REACTIONS (7)
  - NERVE INJURY [None]
  - FATIGUE [None]
  - ORAL HERPES [None]
  - OEDEMA PERIPHERAL [None]
  - EYE SWELLING [None]
  - ABDOMINAL PAIN UPPER [None]
  - NAUSEA [None]
